FAERS Safety Report 10638590 (Version 1)
Quarter: 2014Q4

REPORT INFORMATION
  Report Type: Spontaneous
  Country: US (occurrence: None)
  Receive Date: 20141121
  Receipt Date: 20141121
  Transmission Date: 20150529
  Serious: No
  Sender: FDA-Public Use
  Company Number: 163-10004-14092806

PATIENT
  Age: 25 Year
  Sex: Female

DRUGS (4)
  1. OTEZLA [Suspect]
     Active Substance: APREMILAST
     Indication: PSORIATIC ARTHROPATHY
     Dosage: 60 MG, 2 IN 1 D, PO
     Route: 048
     Dates: start: 20140822
  2. FOLIC ACID (FOLIC ACID) [Concomitant]
     Active Substance: FOLIC ACID
  3. MTX (METHOTREXATE SODIUM) [Concomitant]
  4. ASPIRIN. [Suspect]
     Active Substance: ASPIRIN

REACTIONS (2)
  - Fatigue [None]
  - Depressed mood [None]

NARRATIVE: CASE EVENT DATE: 2014
